FAERS Safety Report 6322118-9 (Version None)
Quarter: 2009Q3

REPORT INFORMATION
  Report Type: 
  Country: None (occurrence: None)
  Receive Date: 20090821
  Receipt Date: 20090821
  Transmission Date: 20100115
  Serious: Yes (Other)
  Sender: FDA-Public Use
  Company Number: None

PATIENT
  Age: 17 Year
  Sex: Female
  Weight: 54.4316 kg

DRUGS (2)
  1. LEXAPRO [Suspect]
     Indication: DEPRESSION
     Dosage: ONE TABLET DAILY PO
     Route: 048
  2. LEXAPRO [Suspect]
     Indication: STRESS
     Dosage: ONE TABLET DAILY PO
     Route: 048

REACTIONS (7)
  - ABNORMAL BEHAVIOUR [None]
  - AGITATION [None]
  - ALOPECIA [None]
  - AMNESIA [None]
  - ANGER [None]
  - IMPULSE-CONTROL DISORDER [None]
  - TRICHOTILLOMANIA [None]
